FAERS Safety Report 20246313 (Version 4)
Quarter: 2023Q1

REPORT INFORMATION
  Report Type: Report from Study
  Country: CH (occurrence: CH)
  Receive Date: 20211229
  Receipt Date: 20230323
  Transmission Date: 20230418
  Serious: Yes (Congenital Anomaly)
  Sender: FDA-Public Use
  Company Number: CH-NOVARTISPH-NVSC2018CH021112

PATIENT
  Sex: Male

DRUGS (6)
  1. GILENYA [Suspect]
     Active Substance: FINGOLIMOD HYDROCHLORIDE
     Indication: Foetal exposure during pregnancy
     Dosage: MATERNAL DOSE: 0.5 MG, QD
     Route: 064
     Dates: start: 20160526, end: 20170113
  2. VITAMIN D [Concomitant]
     Active Substance: VITAMIN D NOS
     Indication: Foetal exposure during pregnancy
     Dosage: MATERNAL DOSE: 1000 OT, QD
     Route: 064
     Dates: start: 201402
  3. GYNO-TARDYFERON [Concomitant]
     Indication: Foetal exposure during pregnancy
     Dosage: MATERNAL DOSE: 80 MG, BID
     Route: 064
     Dates: start: 20141204
  4. IBUPROFEN [Concomitant]
     Active Substance: IBUPROFEN
     Indication: Foetal exposure during pregnancy
     Dosage: MATERNAL DOSE: 600 MG, TID
     Route: 064
     Dates: start: 20141201
  5. AUGMENTIN [Concomitant]
     Active Substance: AMOXICILLIN\CLAVULANATE POTASSIUM
     Indication: Foetal exposure during pregnancy
     Dosage: MATERNAL DOSE: 1 G, TID
     Route: 064
     Dates: start: 201704, end: 201704
  6. HERBALS [Concomitant]
     Active Substance: HERBALS
     Indication: Foetal exposure during pregnancy
     Dosage: MATERNAL DOSE: UNKNOWN, BID
     Route: 064

REACTIONS (2)
  - Congenital inguinal hernia [Unknown]
  - Foetal exposure during pregnancy [Unknown]
